FAERS Safety Report 21986799 (Version 2)
Quarter: 2023Q1

REPORT INFORMATION
  Report Type: Report from Study
  Country: IT (occurrence: None)
  Receive Date: 20230213
  Receipt Date: 20230323
  Transmission Date: 20230417
  Serious: Yes (Other)
  Sender: FDA-Public Use
  Company Number: IT-ROCHE-3281337

PATIENT
  Age: 62 Year
  Sex: Male
  Weight: 75 kg

DRUGS (12)
  1. COBIMETINIB [Suspect]
     Active Substance: COBIMETINIB
     Indication: Malignant melanoma
     Route: 048
     Dates: start: 20221227, end: 20230206
  2. ATEZOLIZUMAB [Suspect]
     Active Substance: ATEZOLIZUMAB
     Indication: Malignant melanoma
     Route: 041
     Dates: start: 20230116, end: 20230116
  3. VEMURAFENIB [Suspect]
     Active Substance: VEMURAFENIB
     Indication: Malignant melanoma
     Route: 048
     Dates: start: 20221227, end: 20230206
  4. OMEPRAZOLE [Concomitant]
     Active Substance: OMEPRAZOLE
     Dates: start: 20230204
  5. METOCLOPRAMIDE HYDROCHLORIDE [Concomitant]
     Active Substance: METOCLOPRAMIDE HYDROCHLORIDE
     Dates: start: 20230204
  6. METHYLPREDNISOLONE [Concomitant]
     Active Substance: METHYLPREDNISOLONE
     Dates: start: 20230207, end: 20230214
  7. METHYLPREDNISOLONE [Concomitant]
     Active Substance: METHYLPREDNISOLONE
     Dates: start: 20230207, end: 20230214
  8. PREDNISONE [Concomitant]
     Active Substance: PREDNISONE
     Dates: start: 20230215, end: 20230217
  9. PREDNISONE [Concomitant]
     Active Substance: PREDNISONE
     Dates: start: 20230218, end: 20230227
  10. PREDNISONE [Concomitant]
     Active Substance: PREDNISONE
     Dates: start: 20230228, end: 20230317
  11. PREDNISONE [Concomitant]
     Active Substance: PREDNISONE
     Dates: start: 20230307, end: 20230313
  12. PREDNISONE [Concomitant]
     Active Substance: PREDNISONE
     Dates: start: 20230313

REACTIONS (1)
  - Drug-induced liver injury [Recovering/Resolving]

NARRATIVE: CASE EVENT DATE: 20230206
